FAERS Safety Report 8599195-8 (Version None)
Quarter: 2012Q3

REPORT INFORMATION
  Report Type: 
  Country: None (occurrence: None)
  Receive Date: 20120816
  Receipt Date: 20120807
  Transmission Date: 20120928
  Serious: No
  Sender: FDA-Public Use
  Company Number: US-ASTRAZENECA-2012SE55766

PATIENT
  Age: 66 Year
  Sex: Female
  Weight: 54.4 kg

DRUGS (6)
  1. DOXYCYCLINE HCL [Concomitant]
     Indication: PNEUMONIA
  2. ALBUTEROL [Concomitant]
  3. SYMBICORT [Suspect]
     Dosage: 160/4.5 MCG ONCE A DAY
     Route: 055
  4. SYMBICORT [Suspect]
     Indication: EMPHYSEMA
     Dosage: 320 MCG TWO TIMES A DAY
     Route: 055
     Dates: start: 20110101
  5. SYMBICORT [Suspect]
     Dosage: 160/4.5 MCG ONCE A DAY
     Route: 055
  6. SYMBICORT [Suspect]
     Indication: CHRONIC OBSTRUCTIVE PULMONARY DISEASE
     Dosage: 320 MCG TWO TIMES A DAY
     Route: 055
     Dates: start: 20110101

REACTIONS (4)
  - VISUAL IMPAIRMENT [None]
  - TREMOR [None]
  - OFF LABEL USE [None]
  - MUSCLE SPASMS [None]
